FAERS Safety Report 21847915 (Version 1)
Quarter: 2023Q1

REPORT INFORMATION
  Report Type: Spontaneous
  Country: US (occurrence: None)
  Receive Date: 20230111
  Receipt Date: 20230111
  Transmission Date: 20230417
  Serious: Yes (Other)
  Sender: FDA-Public Use
  Company Number: US-ROCHE-3257919

PATIENT
  Age: 70 Year
  Sex: Female

DRUGS (1)
  1. ALECENSA [Suspect]
     Active Substance: ALECTINIB HYDROCHLORIDE
     Indication: Non-small cell lung cancer
     Dosage: 4 CAPSULES IN THE MORNING AND 4 AT NIGHT, HOWEVER SHE DID NOT KNOW THE EXACT DOSAGE
     Route: 065
     Dates: start: 202112

REACTIONS (2)
  - Fatigue [Unknown]
  - Diverticulitis [Unknown]

NARRATIVE: CASE EVENT DATE: 20221201
